FAERS Safety Report 6539412-9 (Version None)
Quarter: 2010Q1

REPORT INFORMATION
  Report Type: 
  Country: None (occurrence: None)
  Receive Date: 20100112
  Receipt Date: 20091230
  Transmission Date: 20100710
  Serious: Yes (Other)
  Sender: FDA-Public Use
  Company Number: SPV1-2009-02619

PATIENT
  Age: 7 Year
  Sex: Male

DRUGS (1)
  1. ELAPRASE [Suspect]
     Indication: MUCOPOLYSACCHARIDOSIS II
     Dosage: 2 DF, 1X/WEEK, IV DRIP
     Route: 041
     Dates: start: 20060913

REACTIONS (4)
  - CONVULSION [None]
  - EAR INFECTION [None]
  - PETIT MAL EPILEPSY [None]
  - STARING [None]
